FAERS Safety Report 6510597-3 (Version None)
Quarter: 2009Q4

REPORT INFORMATION
  Report Type: 
  Country: None (occurrence: None)
  Receive Date: 20091222
  Receipt Date: 20091103
  Transmission Date: 20100525
  Serious: No
  Sender: FDA-Public Use
  Company Number: US-ASTRAZENECA-2009SE24189

PATIENT
  Age: 61 Year
  Sex: Female
  Weight: 86.2 kg

DRUGS (3)
  1. CRESTOR [Suspect]
     Route: 048
  2. AZULFADINE [Concomitant]
     Indication: ARTHRITIS
  3. ARTHROTEC [Concomitant]
     Indication: ARTHRITIS

REACTIONS (2)
  - INCORRECT DOSE ADMINISTERED [None]
  - MYALGIA [None]
